FAERS Safety Report 16353688 (Version 4)
Quarter: 2019Q3

REPORT INFORMATION
  Report Type: Spontaneous
  Country: ES (occurrence: ES)
  Receive Date: 20190524
  Receipt Date: 20190915
  Transmission Date: 20191004
  Serious: Yes (Other)
  Sender: FDA-Public Use
  Company Number: PHHY2019ES117163

PATIENT
  Age: 6 Month
  Sex: Male
  Weight: 7.52 kg

DRUGS (4)
  1. CUTIVATE [Concomitant]
     Active Substance: FLUTICASONE PROPIONATE
     Indication: PRODUCT USED FOR UNKNOWN INDICATION
     Dosage: 1 %, QD
     Route: 061
     Dates: start: 20190225, end: 20190303
  2. OMEPRAZOL [Suspect]
     Active Substance: OMEPRAZOLE
     Dosage: 2.8 ML, Q12H
     Route: 048
     Dates: start: 20190225, end: 20190425
  3. MINOXIDIL. [Suspect]
     Active Substance: MINOXIDIL
     Indication: PRODUCT USED FOR UNKNOWN INDICATION
     Dosage: UNK
     Route: 048
     Dates: start: 20190225, end: 20190425
  4. OMEPRAZOL [Suspect]
     Active Substance: OMEPRAZOLE
     Indication: GASTROOESOPHAGEAL REFLUX DISEASE
     Dosage: 2.8 ML, Q12H
     Route: 048
     Dates: start: 20190107

REACTIONS (2)
  - Hypertrichosis [Recovering/Resolving]
  - Product formulation issue [Recovered/Resolved]

NARRATIVE: CASE EVENT DATE: 20190225
